FAERS Safety Report 16418048 (Version 9)
Quarter: 2022Q1

REPORT INFORMATION
  Report Type: Report from Study
  Country: CA (occurrence: CA)
  Receive Date: 20190611
  Receipt Date: 20220331
  Transmission Date: 20220423
  Serious: Yes (Death, Hospitalization, Other)
  Sender: FDA-Public Use
  Company Number: PHHY2018CA012451

PATIENT
  Age: 70 Year
  Sex: Male

DRUGS (3)
  1. SANDOSTATIN LAR DEPOT [Suspect]
     Active Substance: OCTREOTIDE ACETATE
     Indication: Carcinoid tumour
     Dosage: 20 MG, QMO
     Route: 030
     Dates: start: 2012
  2. SANDOSTATIN LAR DEPOT [Suspect]
     Active Substance: OCTREOTIDE ACETATE
     Dosage: 20 MG, QMO
     Route: 030
     Dates: start: 20120101
  3. SANDOSTATIN LAR DEPOT [Suspect]
     Active Substance: OCTREOTIDE ACETATE

REACTIONS (16)
  - Death [Fatal]
  - Cystitis [Recovered/Resolved]
  - Infection [Unknown]
  - Urinary tract infection [Unknown]
  - Haemorrhage [Unknown]
  - Body temperature decreased [Unknown]
  - Blood pressure increased [Unknown]
  - Fall [Unknown]
  - Upper limb fracture [Unknown]
  - Asthenia [Unknown]
  - Gait disturbance [Unknown]
  - Pollakiuria [Unknown]
  - Chromaturia [Unknown]
  - Urinary incontinence [Not Recovered/Not Resolved]
  - Micturition urgency [Unknown]
  - Gait inability [Unknown]

NARRATIVE: CASE EVENT DATE: 20180122
